FAERS Safety Report 4491265-9 (Version None)
Quarter: 2004Q4

REPORT INFORMATION
  Report Type: 
  Country: None (occurrence: None)
  Receive Date: 20041101
  Receipt Date: 20041101
  Transmission Date: 20050328
  Serious: No
  Sender: FDA-Public Use
  Company Number: None

PATIENT
  Age: 96 Year
  Sex: Female
  Weight: 77.1115 kg

DRUGS (2)
  1. LEVAQUIN [Suspect]
     Indication: URINARY TRACT INFECTION
     Dosage: PO
     Route: 048
     Dates: start: 20040609, end: 20040613
  2. LEVAQUIN [Suspect]
     Indication: URINARY TRACT INFECTION
     Dosage: IV
     Route: 042
     Dates: start: 20040909

REACTIONS (2)
  - HALLUCINATION [None]
  - URINARY TRACT INFECTION [None]
